FAERS Safety Report 6431916-2 (Version None)
Quarter: 2009Q4

REPORT INFORMATION
  Report Type: 
  Country: None (occurrence: None)
  Receive Date: 20091109
  Receipt Date: 20091029
  Transmission Date: 20100525
  Serious: Yes (Hospitalization)
  Sender: FDA-Public Use
  Company Number: US-BIOGENIDEC-2006BI008455

PATIENT
  Age: 38 Year
  Sex: Female

DRUGS (6)
  1. AVONEX [Suspect]
     Indication: MULTIPLE SCLEROSIS
     Route: 030
     Dates: start: 20010501, end: 20021201
  2. AVONEX [Suspect]
     Route: 030
     Dates: start: 20030501, end: 20030801
  3. AVONEX [Suspect]
     Route: 030
     Dates: start: 20030801, end: 20060308
  4. AVONEX [Suspect]
     Route: 030
     Dates: start: 20070101, end: 20070301
  5. AVONEX [Suspect]
     Route: 030
     Dates: start: 20081009
  6. COPAXONE [Concomitant]
     Dates: start: 20020613, end: 20030101

REACTIONS (2)
  - COLITIS ULCERATIVE [None]
  - NERVE INJURY [None]
